FAERS Safety Report 24194912 (Version 1)
Quarter: 2024Q3

REPORT INFORMATION
  Report Type: Report from Study
  Country: US (occurrence: US)
  Receive Date: 20240809
  Receipt Date: 20240809
  Transmission Date: 20241016
  Serious: Yes (Other)
  Sender: ASTELLAS
  Company Number: US-ASTELLAS-2024US022367

PATIENT
  Sex: Female

DRUGS (1)
  1. FEZOLINETANT [Suspect]
     Active Substance: FEZOLINETANT
     Indication: Menopausal symptoms
     Dosage: UNK, UNKNOWN FREQ.
     Route: 065

REACTIONS (3)
  - Irritability [Unknown]
  - Condition aggravated [Unknown]
  - Sleep disorder [Unknown]
